FAERS Safety Report 25022789 (Version 1)
Quarter: 2025Q1

REPORT INFORMATION
  Report Type: Spontaneous
  Country: US (occurrence: US)
  Receive Date: 20250228
  Receipt Date: 20250228
  Transmission Date: 20250409
  Serious: No
  Sender: MYLAN
  Company Number: US-MYLANLABS-2025M1013799

PATIENT
  Age: 74 Year
  Sex: Female
  Weight: 91.17 kg

DRUGS (2)
  1. LEVOTHYROXINE SODIUM [Suspect]
     Active Substance: LEVOTHYROXINE SODIUM
     Indication: Autoimmune thyroiditis
     Dosage: 175 MICROGRAM, AM (IN THE MORNING 1 HOUR BEFORE MEAL)
     Dates: start: 2023
  2. ROSUVASTATIN [Concomitant]
     Active Substance: ROSUVASTATIN
     Indication: Hypertension
     Dosage: 100 MILLIGRAM, PM (ONCE A DAY, AT NIGHT)

REACTIONS (4)
  - Peripheral coldness [Recovering/Resolving]
  - Lethargy [Recovering/Resolving]
  - Feeling cold [Recovering/Resolving]
  - Heart rate increased [Recovering/Resolving]

NARRATIVE: CASE EVENT DATE: 20241101
